FAERS Safety Report 15421822 (Version 1)
Quarter: 2018Q3

REPORT INFORMATION
  Report Type: Spontaneous
  Country: US (occurrence: US)
  Receive Date: 20180924
  Receipt Date: 20180924
  Transmission Date: 20181010
  Serious: No
  Sender: FDA-Public Use
  Company Number: US-ALLERGAN-1835816US

PATIENT
  Age: 80 Year
  Sex: Female

DRUGS (3)
  1. BIOTIN [Concomitant]
     Active Substance: BIOTIN
     Dosage: UNK
     Route: 048
  2. LINZESS [Suspect]
     Active Substance: LINACLOTIDE
     Indication: CONSTIPATION
     Dosage: 145 ?G, QD
     Route: 048
     Dates: start: 20180621
  3. LINZESS [Suspect]
     Active Substance: LINACLOTIDE
     Dosage: 2 DF, QD
     Route: 048
     Dates: end: 201807

REACTIONS (4)
  - Oedema peripheral [Recovered/Resolved]
  - Alopecia [Recovering/Resolving]
  - Drug ineffective [Unknown]
  - Weight increased [Recovered/Resolved]
